FAERS Safety Report 6623809-2 (Version None)
Quarter: 2010Q1

REPORT INFORMATION
  Report Type: 
  Country: None (occurrence: None)
  Receive Date: 20100305
  Receipt Date: 20100225
  Transmission Date: 20100710
  Serious: Yes (Hospitalization)
  Sender: FDA-Public Use
  Company Number: 2009JP000286

PATIENT
  Age: 39 Year
  Sex: Female
  Weight: 43.8 kg

DRUGS (7)
  1. TACROLIMUS [Suspect]
     Indication: LUPUS NEPHRITIS
     Dosage: 1 MG, /D, ORAL; 1.5 MG, /D, ORAL
     Route: 048
     Dates: start: 20080121, end: 20080708
  2. TACROLIMUS [Suspect]
     Indication: LUPUS NEPHRITIS
     Dosage: 1 MG, /D, ORAL; 1.5 MG, /D, ORAL
     Route: 048
     Dates: start: 20080709, end: 20081128
  3. PREDNISOLONE [Concomitant]
  4. MARZULENE-S (AZULENE, LEVOGLUTAMIDE, SODIUM GUALENATE) [Concomitant]
  5. ACTONEL [Concomitant]
  6. LANSOPRAZOLE [Concomitant]
  7. LOXONIN (LOXOPROFEN) [Concomitant]

REACTIONS (8)
  - BLOOD ALBUMIN DECREASED [None]
  - BLOOD UREA INCREASED [None]
  - CONDITION AGGRAVATED [None]
  - HAEMOGLOBIN DECREASED [None]
  - HYPOKALAEMIA [None]
  - PROTEIN TOTAL DECREASED [None]
  - RED BLOOD CELL COUNT DECREASED [None]
  - SYSTEMIC LUPUS ERYTHEMATOSUS [None]
